FAERS Safety Report 8405498-X (Version None)
Quarter: 2012Q2

REPORT INFORMATION
  Report Type: 
  Country: None (occurrence: None)
  Receive Date: 20120604
  Receipt Date: 20120524
  Transmission Date: 20120825
  Serious: No
  Sender: FDA-Public Use
  Company Number: US-BIOGENIDEC-2010BI040934

PATIENT
  Age: 48 Year
  Sex: Female

DRUGS (3)
  1. TYSABRI [Suspect]
     Indication: MULTIPLE SCLEROSIS
     Route: 042
     Dates: start: 20080326, end: 20091125
  2. TYSABRI [Suspect]
     Route: 042
     Dates: start: 20100923, end: 20120401
  3. STEROIDS (NOS) [Concomitant]

REACTIONS (4)
  - ARTHRALGIA [None]
  - MULTIPLE SCLEROSIS RELAPSE [None]
  - POOR PERIPHERAL CIRCULATION [None]
  - VISUAL IMPAIRMENT [None]
